FAERS Safety Report 21718328 (Version 3)
Quarter: 2022Q4

REPORT INFORMATION
  Report Type: Report from Study
  Country: US (occurrence: US)
  Receive Date: 20221212
  Receipt Date: 20221222
  Transmission Date: 20230113
  Serious: No
  Sender: FDA-Public Use
  Company Number: US-ABBVIE-4208131

PATIENT
  Sex: Female

DRUGS (3)
  1. RINVOQ [Suspect]
     Active Substance: UPADACITINIB
     Indication: Rheumatoid arthritis
     Route: 048
  2. COVID-19 vaccine [Concomitant]
     Indication: COVID-19 immunisation
  3. IBUPROFEN [Concomitant]
     Active Substance: IBUPROFEN
     Indication: Product used for unknown indication

REACTIONS (9)
  - Arthralgia [Unknown]
  - Neck pain [Unknown]
  - Pain in extremity [Unknown]
  - Joint range of motion decreased [Unknown]
  - Anxiety [Unknown]
  - Feeling hot [Unknown]
  - Insomnia [Unknown]
  - Loss of personal independence in daily activities [Unknown]
  - Erythema [Unknown]

NARRATIVE: CASE EVENT DATE: 20220101
